FAERS Safety Report 10715649 (Version 1)
Quarter: 2015Q1

REPORT INFORMATION
  Report Type: Spontaneous
  Country: US (occurrence: None)
  Receive Date: 20150108
  Receipt Date: 20150108
  Transmission Date: 20150721
  Serious: Yes (Other)
  Sender: FDA-Public Use
  Company Number: 2014SUN00221

PATIENT

DRUGS (1)
  1. CITALOPRAM [Suspect]
     Active Substance: CITALOPRAM HYDROBROMIDE
     Indication: DEPRESSION
     Dates: start: 20131129, end: 20131217

REACTIONS (12)
  - Coordination abnormal [None]
  - Aggression [None]
  - Restlessness [None]
  - Confusional state [None]
  - Tremor [None]
  - Anxiety [None]
  - Irritability [None]
  - Nervousness [None]
  - Disturbance in attention [None]
  - Agitation [None]
  - Memory impairment [None]
  - Drug ineffective [None]
